FAERS Safety Report 10244238 (Version 1)
Quarter: 2014Q2

REPORT INFORMATION
  Report Type: Spontaneous
  Country: AU (occurrence: None)
  Receive Date: 20140616
  Receipt Date: 20140616
  Transmission Date: 20141212
  Serious: Yes (Hospitalization)
  Sender: FDA-Public Use
  Company Number: AU-AIKEM-000613

PATIENT
  Age: 66 Year
  Sex: Female

DRUGS (2)
  1. METFORMIN (METFORMIN) [Suspect]
     Indication: PRODUCT USED FOR UNKNOWN INDICATION
     Dosage: 3.00000000-G-1.0DAY /S
  2. ASPIRIN (ASPIRIN) [Suspect]
     Indication: PRODUCT USED FOR UNKNOWN INDICATION
     Dosage: 100.00000000-MG-1.0 1 DAYS

REACTIONS (7)
  - Lactic acidosis [None]
  - Cardiac arrest [None]
  - Dehydration [None]
  - Renal failure acute [None]
  - Confusional state [None]
  - Coma scale abnormal [None]
  - Pulseless electrical activity [None]
